FAERS Safety Report 7384070-7 (Version None)
Quarter: 2011Q1

REPORT INFORMATION
  Report Type: 
  Country: None (occurrence: None)
  Receive Date: 20110330
  Receipt Date: 20110324
  Transmission Date: 20110831
  Serious: Yes (Hospitalization)
  Sender: FDA-Public Use
  Company Number: A0772833A

PATIENT
  Age: 52 Year
  Sex: Female
  Weight: 130.9 kg

DRUGS (3)
  1. TRAMADOL [Concomitant]
  2. ZESTORETIC [Concomitant]
  3. AVANDIA [Suspect]
     Indication: DIABETES MELLITUS
     Route: 048
     Dates: start: 20000323

REACTIONS (1)
  - CEREBROVASCULAR ACCIDENT [None]
